FAERS Safety Report 17845768 (Version 1)
Quarter: 2020Q2

REPORT INFORMATION
  Report Type: Spontaneous
  Country: US (occurrence: US)
  Receive Date: 20200530
  Receipt Date: 20200530
  Transmission Date: 20200714
  Serious: Yes (Life-Threatening, Hospitalization, Disabling, Other)
  Sender: FDA-Public Use
  Company Number: None

PATIENT
  Age: 40 Year
  Sex: Female
  Weight: 63 kg

DRUGS (7)
  1. ALPRAZOLAM. [Suspect]
     Active Substance: ALPRAZOLAM
     Indication: STRESS
     Dosage: ?          QUANTITY:1 TABLET(S);?
     Route: 048
     Dates: start: 20050101, end: 20070701
  2. LAMICTAL [Concomitant]
     Active Substance: LAMOTRIGINE
  3. CELEXA [Concomitant]
     Active Substance: CITALOPRAM HYDROBROMIDE
  4. PROTONIX [Concomitant]
     Active Substance: PANTOPRAZOLE SODIUM
  5. PRAZOSIN. [Concomitant]
     Active Substance: PRAZOSIN
  6. ALPRAZOLAM. [Suspect]
     Active Substance: ALPRAZOLAM
     Indication: ANXIETY
     Dosage: ?          QUANTITY:1 TABLET(S);?
     Route: 048
     Dates: start: 20050101, end: 20070701
  7. TYLENOL [Concomitant]
     Active Substance: ACETAMINOPHEN

REACTIONS (16)
  - Suicidal ideation [None]
  - Disorientation [None]
  - Iatrogenic injury [None]
  - Disability [None]
  - Emotional distress [None]
  - Adverse drug reaction [None]
  - Physical assault [None]
  - Aphasia [None]
  - Drug withdrawal syndrome [None]
  - Vertigo [None]
  - Condition aggravated [None]
  - Post-traumatic stress disorder [None]
  - Chronic disease [None]
  - Involuntary commitment [None]
  - Hospitalisation [None]
  - Stress [None]

NARRATIVE: CASE EVENT DATE: 20070701
